FAERS Safety Report 11197633 (Version 1)
Quarter: 2015Q2

REPORT INFORMATION
  Report Type: Spontaneous
  Country: JP (occurrence: JP)
  Receive Date: 20150617
  Receipt Date: 20150617
  Transmission Date: 20150821
  Serious: Yes (Life-Threatening, Hospitalization, Disabling)
  Sender: FDA-Public Use
  Company Number: JP-DSJP-DSJ-2015-117017

PATIENT

DRUGS (16)
  1. LANSOPRAZOLE. [Concomitant]
     Active Substance: LANSOPRAZOLE
     Dosage: 15 MG, QD
     Route: 048
     Dates: start: 20141003
  2. DIART [Concomitant]
     Active Substance: AZOSEMIDE
     Indication: CARDIAC FAILURE
     Dosage: 30 MG, QD
     Route: 048
     Dates: start: 20150123
  3. SPIRONOLACTONE. [Concomitant]
     Active Substance: SPIRONOLACTONE
     Indication: CARDIAC FAILURE
     Dosage: 25 MG, QD
     Route: 048
     Dates: start: 20141106
  4. RENIVACE [Concomitant]
     Active Substance: ENALAPRIL
     Indication: CARDIAC FAILURE
     Dosage: 5 MG, QD
     Route: 048
     Dates: start: 20141106, end: 20150331
  5. BAYASPIRIN [Suspect]
     Active Substance: ASPIRIN
     Indication: CEREBRAL INFARCTION
     Dosage: 100 MG, QD
     Route: 048
     Dates: start: 20000616, end: 20150501
  6. LIXIANA TABLETS [Suspect]
     Active Substance: EDOXABAN TOSILATE MONOHYDRATE
     Indication: DEEP VEIN THROMBOSIS
     Dosage: 30 MG, QD
     Route: 048
     Dates: start: 20141106, end: 20150501
  7. ALMARL [Concomitant]
     Active Substance: AROTINOLOL HYDROCHLORIDE
     Dosage: 5 MG, QD
     Route: 048
     Dates: start: 20110801, end: 20120816
  8. LANSOPRAZOLE. [Concomitant]
     Active Substance: LANSOPRAZOLE
     Indication: PROPHYLAXIS AGAINST GASTROINTESTINAL ULCER
     Dosage: 15 MG, QD
     Route: 048
     Dates: start: 20120421, end: 20141002
  9. AROTINOLOL [Concomitant]
     Active Substance: AROTINOLOL
     Indication: ESSENTIAL TREMOR
     Dosage: 5 MG, QD
     Route: 048
     Dates: start: 20120817
  10. ENALIN [Concomitant]
     Indication: CARDIAC FAILURE
     Dosage: 5 MG, QD
     Route: 048
     Dates: start: 20150401
  11. BAYASPIRIN [Suspect]
     Active Substance: ASPIRIN
     Dosage: 100 MG, QD
     Route: 048
     Dates: start: 20150513
  12. TAKEPRON [Concomitant]
     Active Substance: LANSOPRAZOLE
     Indication: PROPHYLAXIS AGAINST GASTROINTESTINAL ULCER
     Dosage: 15 MG, QD
     Route: 048
     Dates: start: 20110322, end: 20120420
  13. FUROSEMIDE. [Concomitant]
     Active Substance: FUROSEMIDE
     Indication: CARDIAC FAILURE
     Dosage: 20 MG, QD
     Route: 048
     Dates: start: 20141106, end: 20150122
  14. LIXIANA TABLETS [Suspect]
     Active Substance: EDOXABAN TOSILATE MONOHYDRATE
     Indication: PULMONARY EMBOLISM
  15. ALFAROL [Concomitant]
     Active Substance: ALFACALCIDOL
     Indication: OSTEOPOROSIS
     Dosage: 0.5 ?G, QD
     Route: 048
     Dates: start: 20080618
  16. LENDORMIN [Concomitant]
     Active Substance: BROTIZOLAM
     Indication: INSOMNIA
     Dosage: 0.25 MG, QD
     Route: 048
     Dates: start: 19970311

REACTIONS (4)
  - Lower gastrointestinal haemorrhage [Recovered/Resolved]
  - Anaemia [Recovered/Resolved]
  - Enterocolitis [Recovered/Resolved]
  - Chronic gastritis [Unknown]

NARRATIVE: CASE EVENT DATE: 201504
